FAERS Safety Report 6681905-8 (Version None)
Quarter: 2010Q2

REPORT INFORMATION
  Report Type: 
  Country: None (occurrence: None)
  Receive Date: 20100414
  Receipt Date: 20100412
  Transmission Date: 20101027
  Serious: Yes (Hospitalization)
  Sender: FDA-Public Use
  Company Number: AU-MERCK-1002USA03832

PATIENT
  Age: 51 Year
  Sex: Male
  Weight: 81 kg

DRUGS (4)
  1. ISENTRESS [Suspect]
     Indication: HIV INFECTION
     Route: 048
  2. DARUNAVIR [Concomitant]
     Route: 065
  3. ETRAVIRINE [Concomitant]
     Route: 065
  4. RITONAVIR [Suspect]
     Route: 048
     Dates: start: 20010501, end: 20100303

REACTIONS (2)
  - LIPOHYPERTROPHY [None]
  - LIPOMATOSIS [None]
